FAERS Safety Report 17485154 (Version 1)
Quarter: 2020Q1

REPORT INFORMATION
  Report Type: Spontaneous
  Country: DE (occurrence: DE)
  Receive Date: 20200302
  Receipt Date: 20200302
  Transmission Date: 20200409
  Serious: Yes (Hospitalization, Other)
  Sender: FDA-Public Use
  Company Number: DE-OTSUKA-2020_002415

PATIENT
  Sex: Male

DRUGS (2)
  1. SAMSCA [Suspect]
     Active Substance: TOLVAPTAN
     Indication: HYPONATRAEMIA
     Dosage: 7.5 MG, QOD
     Route: 065
  2. SAMSCA [Suspect]
     Active Substance: TOLVAPTAN
     Dosage: 7.5 MG, QD
     Route: 065

REACTIONS (6)
  - Urethral haemorrhage [Unknown]
  - Drug ineffective for unapproved indication [Unknown]
  - Drug monitoring procedure not performed [Unknown]
  - Aphonia [Recovered/Resolved]
  - Dysphagia [Unknown]
  - Hydrocephalus [Unknown]
